FAERS Safety Report 20166863 (Version 3)
Quarter: 2022Q2

REPORT INFORMATION
  Report Type: Report from Study
  Country: FR (occurrence: FR)
  Receive Date: 20211209
  Receipt Date: 20220414
  Transmission Date: 20220721
  Serious: Yes (Hospitalization)
  Sender: FDA-Public Use
  Company Number: FR-ASTELLAS-2021US046944

PATIENT
  Sex: Male

DRUGS (18)
  1. ENFORTUMAB VEDOTIN [Suspect]
     Active Substance: ENFORTUMAB VEDOTIN
     Indication: Transitional cell carcinoma
     Dosage: 0.99 MG/KG, UNKNOWN FREQ. (C1 DAY 15)
     Route: 042
     Dates: start: 20211104
  2. ENFORTUMAB VEDOTIN [Suspect]
     Active Substance: ENFORTUMAB VEDOTIN
     Dosage: UNK UNK, UNKNOWN FREQ.
     Route: 042
  3. METFORMIN HYDROCHLORIDE [Concomitant]
     Active Substance: METFORMIN HYDROCHLORIDE
     Indication: Delayed ischaemic neurological deficit
     Dosage: UNK UNK (1000), TWICE DAILY
     Route: 048
  4. IRBESARTAN [Concomitant]
     Active Substance: IRBESARTAN
     Indication: Hypertension
     Dosage: UNK UNK (150), ONCE DAILY
     Route: 048
  5. IRBESARTAN [Concomitant]
     Active Substance: IRBESARTAN
  6. IRBESARTAN [Concomitant]
     Active Substance: IRBESARTAN
  7. IRBESARTAN [Concomitant]
     Active Substance: IRBESARTAN
  8. IRBESARTAN [Concomitant]
     Active Substance: IRBESARTAN
  9. IRBESARTAN [Concomitant]
     Active Substance: IRBESARTAN
  10. IRBESARTAN [Concomitant]
     Active Substance: IRBESARTAN
  11. IRBESARTAN [Concomitant]
     Active Substance: IRBESARTAN
  12. IRBESARTAN [Concomitant]
     Active Substance: IRBESARTAN
  13. IRBESARTAN [Concomitant]
     Active Substance: IRBESARTAN
  14. IRBESARTAN [Concomitant]
     Active Substance: IRBESARTAN
  15. IRBESARTAN [Concomitant]
     Active Substance: IRBESARTAN
  16. AMIODARONE [Concomitant]
     Active Substance: AMIODARONE
     Indication: Atrial fibrillation
     Dosage: UNK UNK (200), ONCE DAILY
     Route: 048
  17. LYRICA [Concomitant]
     Active Substance: PREGABALIN
     Indication: Neuropathy peripheral
     Route: 048
  18. MIRTAZAPINE [Concomitant]
     Active Substance: MIRTAZAPINE
     Indication: Depression
     Route: 048

REACTIONS (3)
  - Confusional state [Recovered/Resolved]
  - Asthenia [Not Recovered/Not Resolved]
  - Decreased appetite [Recovered/Resolved with Sequelae]

NARRATIVE: CASE EVENT DATE: 20211101
